FAERS Safety Report 8247387-X (Version None)
Quarter: 2012Q1

REPORT INFORMATION
  Report Type: 
  Country: None (occurrence: None)
  Receive Date: 20120330
  Receipt Date: 20120320
  Transmission Date: 20120608
  Serious: Yes (Other)
  Sender: FDA-Public Use
  Company Number: US-PFIZER INC-2012068940

PATIENT
  Sex: Female
  Weight: 131.54 kg

DRUGS (4)
  1. REMICADE [Suspect]
     Indication: PSORIASIS
     Route: 042
     Dates: start: 20120301
  2. BENADRYL [Concomitant]
     Indication: PREMEDICATION
     Route: 065
  3. IBUPROFEN [Suspect]
     Indication: HEADACHE
     Route: 048
     Dates: start: 20120301
  4. TYLENOL [Concomitant]
     Indication: PREMEDICATION
     Route: 065

REACTIONS (8)
  - PAIN IN EXTREMITY [None]
  - SENSATION OF HEAVINESS [None]
  - OEDEMA PERIPHERAL [None]
  - CARDIAC FAILURE [None]
  - CHEST PAIN [None]
  - DRUG INEFFECTIVE [None]
  - HEADACHE [None]
  - DYSPNOEA [None]
